FAERS Safety Report 22210919 (Version 2)
Quarter: 2023Q2

REPORT INFORMATION
  Report Type: Report from Study
  Country: DE (occurrence: None)
  Receive Date: 20230414
  Receipt Date: 20230519
  Transmission Date: 20230722
  Serious: Yes (Hospitalization, Other)
  Sender: FDA-Public Use
  Company Number: DE-Merck Healthcare KGaA-9395954

PATIENT
  Age: 52 Year
  Sex: Female

DRUGS (2)
  1. REBIF [Suspect]
     Active Substance: INTERFERON BETA-1A
     Indication: Relapsing multiple sclerosis
     Dosage: THERAPY END: ABOUT A YEAR AGO (AS OF 12 APR 2023)
     Route: 058
     Dates: start: 2004
  2. DULOXETINE [Concomitant]
     Active Substance: DULOXETINE
     Indication: Product used for unknown indication

REACTIONS (12)
  - Acute kidney injury [Unknown]
  - Thrombotic microangiopathy [Unknown]
  - Acute myocardial infarction [Unknown]
  - Left ventricular failure [Unknown]
  - Hypertensive heart disease [Unknown]
  - Arteriosclerosis coronary artery [Unknown]
  - Hypertension [Unknown]
  - Oesophageal candidiasis [Unknown]
  - Streptococcal urinary tract infection [Unknown]
  - Depression [Unknown]
  - Tobacco abuse [Unknown]
  - Hypercholesterolaemia [Unknown]
